FAERS Safety Report 7497825-5 (Version None)
Quarter: 2011Q2

REPORT INFORMATION
  Report Type: 
  Country: None (occurrence: None)
  Receive Date: 20110524
  Receipt Date: 20110512
  Transmission Date: 20111010
  Serious: Yes (Hospitalization, Other)
  Sender: FDA-Public Use
  Company Number: US-BAYER-201028753NA

PATIENT
  Age: 44 Year
  Sex: Female
  Weight: 70.295 kg

DRUGS (14)
  1. YASMIN [Suspect]
     Indication: MENOMETRORRHAGIA
     Route: 048
     Dates: start: 20061201, end: 20080701
  2. PRILOSEC [Concomitant]
     Route: 048
  3. AVIANE-28 [Concomitant]
     Indication: CONTRACEPTION
  4. YAZ [Suspect]
     Indication: MENOMETRORRHAGIA
  5. MICROGESTIN FE 1.5/30 [Concomitant]
     Indication: MENOMETRORRHAGIA
     Dosage: UNK
     Dates: start: 20030101, end: 20040701
  6. NAPROXEN [Concomitant]
     Dosage: UNK
     Dates: start: 20070101, end: 20080101
  7. MULTI-VITAMIN [Concomitant]
     Route: 048
  8. YASMIN [Suspect]
     Indication: CONTRACEPTION
     Route: 048
     Dates: start: 20050401, end: 20061001
  9. CALCIUM D [Concomitant]
     Route: 048
  10. OMEPRAZOLE [Concomitant]
     Indication: HAEMORRHAGE PROPHYLAXIS
     Dosage: UNK
     Dates: start: 20080701
  11. YAZ [Suspect]
     Indication: CONTRACEPTION
     Route: 048
     Dates: start: 20061101, end: 20061101
  12. MICROGESTIN FE 1.5/30 [Concomitant]
     Indication: CONTRACEPTION
  13. AVIANE-28 [Concomitant]
     Indication: MENOMETRORRHAGIA
     Dosage: UNK
     Dates: start: 20040701, end: 20041001
  14. IBUPROFEN [Concomitant]
     Dosage: UNK
     Dates: start: 20070101, end: 20080101

REACTIONS (2)
  - SPLENIC VEIN THROMBOSIS [None]
  - PORTAL VEIN THROMBOSIS [None]
